FAERS Safety Report 4607884-2 (Version None)
Quarter: 2005Q1

REPORT INFORMATION
  Report Type: 
  Country: None (occurrence: None)
  Receive Date: 20050310
  Receipt Date: 20050223
  Transmission Date: 20050727
  Serious: Yes (Other)
  Sender: FDA-Public Use
  Company Number: 2004AP06437

PATIENT
  Age: 30 Year
  Sex: Female

DRUGS (6)
  1. ZOLADEX [Suspect]
     Indication: BREAST CANCER
     Dosage: 3.6 MG Q4WK SQ
     Route: 058
     Dates: start: 20041026, end: 20041122
  2. ZOLADEX [Suspect]
     Indication: BREAST CANCER
     Dosage: 3.6 MG Q4WK SQ
     Route: 058
     Dates: start: 20050111
  3. NOLVADEX [Suspect]
     Indication: BREAST CANCER
     Dosage: 20 MG DAILY PO
     Route: 048
     Dates: start: 20041026
  4. CYCLOPHOSPHAMIDE [Concomitant]
  5. EPIRUBICIN [Concomitant]
  6. FLUOROURACIL [Concomitant]

REACTIONS (3)
  - CARPAL TUNNEL SYNDROME [None]
  - HYPERVOLAEMIA [None]
  - MENOPAUSAL SYMPTOMS [None]
